FAERS Safety Report 4698832-8 (Version None)
Quarter: 2005Q2

REPORT INFORMATION
  Report Type: 
  Country: None (occurrence: None)
  Receive Date: 20050623
  Receipt Date: 20050621
  Transmission Date: 20051028
  Serious: Yes (Death, Hospitalization)
  Sender: FDA-Public Use
  Company Number: 05-05-0925

PATIENT
  Age: 83 Year
  Sex: Female
  Weight: 67.586 kg

DRUGS (11)
  1. CLOZAPINE [Suspect]
     Indication: SCHIZOPHRENIA, UNDIFFERENTIATED TYPE
     Dosage: 175MG QD ORAL
     Route: 048
     Dates: start: 20000701, end: 20050416
  2. ATENOLOL [Concomitant]
  3. DILTIAZEM [Concomitant]
  4. LIPITOR [Concomitant]
  5. METFORMIN [Concomitant]
  6. PAROXETINE HCL [Concomitant]
  7. LORAZEPAM [Concomitant]
  8. TRAZODONE [Concomitant]
  9. LASIX [Concomitant]
  10. GLYBURIDE [Concomitant]
  11. ZITHROMAX [Concomitant]

REACTIONS (4)
  - CARDIAC ARREST [None]
  - PNEUMONIA PNEUMOCOCCAL [None]
  - SEPSIS [None]
  - UPPER RESPIRATORY TRACT INFECTION [None]
